FAERS Safety Report 8349194-6 (Version None)
Quarter: 2012Q2

REPORT INFORMATION
  Report Type: 
  Country: None (occurrence: None)
  Receive Date: 20120510
  Receipt Date: 20120507
  Transmission Date: 20120825
  Serious: Yes (Other)
  Sender: FDA-Public Use
  Company Number: US-AMGEN-USASP2011044872

PATIENT
  Age: 37 Year
  Sex: Male
  Weight: 77.551 kg

DRUGS (4)
  1. GLYBURIDE [Concomitant]
  2. METFORMIN HCL [Concomitant]
  3. NPLATE [Suspect]
     Indication: IDIOPATHIC THROMBOCYTOPENIC PURPURA
     Dates: start: 20101207
  4. CORTICOSTEROIDS [Concomitant]
     Indication: IDIOPATHIC THROMBOCYTOPENIC PURPURA

REACTIONS (2)
  - PULMONARY EMBOLISM [None]
  - PLATELET COUNT INCREASED [None]
